FAERS Safety Report 21615609 (Version 2)
Quarter: 2022Q4

REPORT INFORMATION
  Report Type: Spontaneous
  Country: US (occurrence: US)
  Receive Date: 20221118
  Receipt Date: 20221130
  Transmission Date: 20230112
  Serious: Yes (Other)
  Sender: FDA-Public Use
  Company Number: US-JUBILANT CADISTA PHARMACEUTICALS-2022JUB00433

PATIENT
  Age: 3 Decade
  Sex: Female

DRUGS (6)
  1. PREDNISONE [Suspect]
     Active Substance: PREDNISONE
     Indication: Organising pneumonia
     Dosage: 20 MG, 1X/DAY
  2. PREDNISONE [Suspect]
     Active Substance: PREDNISONE
     Indication: Infection
     Dosage: 40 MG, 1X/DAY
  3. PREDNISONE [Suspect]
     Active Substance: PREDNISONE
     Dosage: 60 MG, 1X/DAY
     Route: 065
  4. PREDNISONE [Suspect]
     Active Substance: PREDNISONE
     Dosage: DECREASING TAPER
     Route: 065
  5. CLARITHROMYCIN [Concomitant]
     Active Substance: CLARITHROMYCIN
     Indication: Organising pneumonia
     Dosage: 250 MG EVERY 12 HOUR
     Route: 065
  6. MYCOPHENOLIC ACID [Concomitant]
     Active Substance: MYCOPHENOLIC ACID
     Indication: Organising pneumonia
     Dosage: 2 G, 1X/DAY
     Route: 065

REACTIONS (5)
  - Toxicity to various agents [Unknown]
  - Weight increased [Unknown]
  - Non-alcoholic fatty liver [Unknown]
  - Steroid diabetes [Unknown]
  - Treatment failure [Unknown]
